FAERS Safety Report 4632528-3 (Version None)
Quarter: 2005Q2

REPORT INFORMATION
  Report Type: 
  Country: None (occurrence: None)
  Receive Date: 20050408
  Receipt Date: 20050329
  Transmission Date: 20051028
  Serious: Yes (Hospitalization)
  Sender: FDA-Public Use
  Company Number: 05-03-0530

PATIENT
  Age: 54 Year
  Sex: Female

DRUGS (12)
  1. PROBENECID W/ COLCHICINE [Suspect]
     Indication: GOUT
     Dosage: 0.6 MG, TID
  2. GABAPENTIN [Concomitant]
  3. CALCIUM ACETATE [Concomitant]
  4. .......... [Concomitant]
  5. SEVELAMER [Concomitant]
  6. EPOGEN [Concomitant]
  7. MULTIVITAMINS W/ MINERALS [Concomitant]
  8. METOCLOPRAMIDE [Concomitant]
  9. FERROUS SULFATE TAB [Concomitant]
  10. DOCUSATE [Concomitant]
  11. SENNA [Concomitant]
  12. ACETAMINOPHEN W/ CODEINE [Concomitant]

REACTIONS (11)
  - ABDOMINAL PAIN UPPER [None]
  - ACTIVITIES OF DAILY LIVING IMPAIRED [None]
  - ARTHRALGIA [None]
  - ASTHENIA [None]
  - BUTTOCK PAIN [None]
  - HEPATITIS [None]
  - JOINT SWELLING [None]
  - MYOPATHY [None]
  - PAIN [None]
  - PAIN IN EXTREMITY [None]
  - VOMITING [None]
